FAERS Safety Report 9019850 (Version 1)
Quarter: 2013Q1

REPORT INFORMATION
  Report Type: Spontaneous
  Country: FR (occurrence: FR)
  Receive Date: 20130118
  Receipt Date: 20130118
  Transmission Date: 20140127
  Serious: Yes (Other)
  Sender: FDA-Public Use
  Company Number: FR-ROCHE-1180994

PATIENT
  Sex: 0

DRUGS (2)
  1. MABTHERA [Suspect]
     Indication: LYMPHOMA
     Route: 065
  2. NIPENT [Concomitant]
     Indication: LYMPHOMA

REACTIONS (1)
  - Malaise [Unknown]
